FAERS Safety Report 22059202 (Version 1)
Quarter: 2023Q1

REPORT INFORMATION
  Report Type: Spontaneous
  Country: CA (occurrence: CA)
  Receive Date: 20230303
  Receipt Date: 20230303
  Transmission Date: 20230417
  Serious: Yes (Life-Threatening, Hospitalization)
  Sender: FDA-Public Use
  Company Number: CA-EXELA PHARMA SCIENCES, LLC-2023EXL00003

PATIENT
  Age: 15 Year
  Sex: Female

DRUGS (6)
  1. ACETYLCYSTEINE [Suspect]
     Active Substance: ACETYLCYSTEINE
     Indication: Overdose
     Dosage: 6.25 MG/KG/H
     Route: 042
  2. ACETYLCYSTEINE [Suspect]
     Active Substance: ACETYLCYSTEINE
     Dosage: 12.5 MG/KG/H
  3. ACETYLCYSTEINE [Suspect]
     Active Substance: ACETYLCYSTEINE
     Dosage: 72 MG/KG/H
  4. ACETYLCYSTEINE [Suspect]
     Active Substance: ACETYLCYSTEINE
     Dosage: 15.6 MG/KG/H
  5. ACETYLCYSTEINE [Suspect]
     Active Substance: ACETYLCYSTEINE
     Dosage: 72 MG/KG/H
  6. ACETYLCYSTEINE [Suspect]
     Active Substance: ACETYLCYSTEINE
     Dosage: 12.5 MG/KG/H

REACTIONS (8)
  - Seizure [Recovered/Resolved]
  - Brain oedema [Not Recovered/Not Resolved]
  - Brain herniation [Not Recovered/Not Resolved]
  - Brain death [Not Recovered/Not Resolved]
  - Agitation [Recovered/Resolved]
  - Headache [Not Recovered/Not Resolved]
  - Hepatic encephalopathy [Unknown]
  - Pupil fixed [Not Recovered/Not Resolved]
